FAERS Safety Report 23150651 (Version 1)
Quarter: 2023Q4

REPORT INFORMATION
  Report Type: Spontaneous
  Country: US (occurrence: None)
  Receive Date: 20231103
  Receipt Date: 20231103
  Transmission Date: 20240110
  Serious: No
  Sender: FDA-Public Use
  Company Number: None

PATIENT
  Age: 72 Year
  Sex: Male

DRUGS (1)
  1. VTAMA [Suspect]
     Active Substance: TAPINAROF
     Indication: Palmoplantar pustulosis
     Dosage: OTHER QUANTITY : THIN LAYER;?FREQUENCY : DAILY;?
     Dates: start: 202309

REACTIONS (1)
  - Pneumonia [None]
